FAERS Safety Report 19897243 (Version 1)
Quarter: 2021Q3

REPORT INFORMATION
  Report Type: Spontaneous
  Country: IT (occurrence: IT)
  Receive Date: 20210929
  Receipt Date: 20210929
  Transmission Date: 20211014
  Serious: Yes (Life-Threatening, Hospitalization, Other)
  Sender: FDA-Public Use
  Company Number: IT-ALVOGEN-2021-ALVOGEN-117587

PATIENT
  Age: 55 Year
  Sex: Female

DRUGS (1)
  1. FLECAINIDE [Suspect]
     Active Substance: FLECAINIDE
     Indication: ATRIAL FIBRILLATION

REACTIONS (5)
  - Atrial fibrillation [Unknown]
  - Terminal state [Unknown]
  - Electrocardiogram QRS complex prolonged [Unknown]
  - Sinus bradycardia [Unknown]
  - Atrial tachycardia [Unknown]
